FAERS Safety Report 6844468-X (Version None)
Quarter: 2010Q2

REPORT INFORMATION
  Report Type: 
  Country: None (occurrence: None)
  Receive Date: 20100629
  Receipt Date: 20100430
  Transmission Date: 20101027
  Serious: No
  Sender: FDA-Public Use
  Company Number: US-WYE-H14951610

PATIENT
  Age: 46 Year
  Sex: Male

DRUGS (3)
  1. PRISTIQ [Suspect]
     Indication: DEPRESSION
     Dosage: 50 MG 1X PER 1 DAY, ORAL
     Route: 048
     Dates: start: 20081201
  2. HUMIRA [Concomitant]
  3. SINGULAIR [Concomitant]

REACTIONS (4)
  - CONDITION AGGRAVATED [None]
  - DYSPEPSIA [None]
  - IRRITABILITY [None]
  - MEDICATION RESIDUE [None]
